FAERS Safety Report 14107669 (Version 1)
Quarter: 2017Q4

REPORT INFORMATION
  Report Type: Spontaneous
  Country: CN (occurrence: CN)
  Receive Date: 20171019
  Receipt Date: 20171019
  Transmission Date: 20180321
  Serious: Yes (Hospitalization, Other)
  Sender: FDA-Public Use
  Company Number: CN-BAXTER-2017BAX035602

PATIENT
  Age: 77 Year
  Sex: Male
  Weight: 71 kg

DRUGS (6)
  1. TROXERUTIN [Suspect]
     Active Substance: TROXERUTIN
     Indication: CEREBRAL THROMBOSIS
     Dosage: TROXERUTIN AND CEREBROPROTEIN HYDROLYSATE INJECTION 10 ML
     Route: 041
     Dates: start: 20170705, end: 20170706
  2. 0.9% SODIUM CHLORIDE INJECTION [Suspect]
     Active Substance: SODIUM CHLORIDE
     Route: 041
     Dates: start: 20170705, end: 20170706
  3. CEREBROPROTEIN HYDROLYSATE [Suspect]
     Active Substance: PROTEIN HYDROLYSATE
     Indication: CEREBRAL THROMBOSIS
     Dosage: TROXERUTIN AND CEREBROPROTEIN HYDROLYSATE INJECTION 10 ML
     Route: 041
     Dates: start: 20170705, end: 20170706
  4. CALCIUM GLUCONATE. [Suspect]
     Active Substance: CALCIUM GLUCONATE
     Indication: ANTIALLERGIC THERAPY
     Route: 040
     Dates: start: 20170706
  5. 0.9% SODIUM CHLORIDE INJECTION [Suspect]
     Active Substance: SODIUM CHLORIDE
     Indication: MEDICATION DILUTION
     Route: 041
     Dates: start: 20170705, end: 20170706
  6. 10% GLUCOSE  INJECTION [Suspect]
     Active Substance: DEXTROSE
     Indication: MEDICATION DILUTION
     Route: 040
     Dates: start: 20170706

REACTIONS (4)
  - Flushing [Recovering/Resolving]
  - Rash [Recovered/Resolved]
  - Insomnia [Recovering/Resolving]
  - Pruritus [Recovered/Resolved]

NARRATIVE: CASE EVENT DATE: 20170706
